FAERS Safety Report 10015240 (Version 1)
Quarter: 2014Q1

REPORT INFORMATION
  Report Type: Spontaneous
  Country: US (occurrence: US)
  Receive Date: 20140317
  Receipt Date: 20140317
  Transmission Date: 20141002
  Serious: No
  Sender: FDA-Public Use
  Company Number: US-PFIZER INC-2014073707

PATIENT
  Age: 84 Year
  Sex: Female
  Weight: 63 kg

DRUGS (2)
  1. NORVASC [Suspect]
     Indication: HYPERTENSION
     Dosage: 2.5 MG, 1X/DAY
  2. PREDNISONE [Concomitant]
     Indication: TEMPORAL ARTERITIS
     Dosage: 6 MG, 1X/DAY

REACTIONS (2)
  - Tremor [Unknown]
  - Asthenia [Unknown]
